FAERS Safety Report 14197510 (Version 1)
Quarter: 2017Q4

REPORT INFORMATION
  Report Type: Spontaneous
  Country: US (occurrence: US)
  Receive Date: 20171116
  Receipt Date: 20171116
  Transmission Date: 20180321
  Serious: No
  Sender: FDA-Public Use
  Company Number: US-BAUSCH-BL-2017-021229

PATIENT
  Age: 80 Year
  Sex: Female

DRUGS (2)
  1. IMDUR [Concomitant]
     Active Substance: ISOSORBIDE MONONITRATE
     Indication: ATRIOVENTRICULAR BLOCK
  2. XIFAXAN [Suspect]
     Active Substance: RIFAXIMIN
     Indication: DIARRHOEA
     Route: 065
     Dates: start: 20170623, end: 2017

REACTIONS (4)
  - Pruritus [Recovered/Resolved]
  - Treatment noncompliance [Unknown]
  - Off label use [Recovered/Resolved]
  - Drug effect incomplete [Recovered/Resolved]

NARRATIVE: CASE EVENT DATE: 2017
